FAERS Safety Report 17291893 (Version 1)
Quarter: 2020Q1

REPORT INFORMATION
  Report Type: Spontaneous
  Country: US (occurrence: US)
  Receive Date: 20191231
  Receipt Date: 20191231
  Transmission Date: 20200409
  Serious: No
  Sender: FDA-Public Use
  Company Number: None

PATIENT
  Age: 64 Year
  Sex: Male

DRUGS (8)
  1. METFORMIN [Concomitant]
     Active Substance: METFORMIN HYDROCHLORIDE
  2. ASPERIN [Concomitant]
  3. HALOPERIDOL. [Concomitant]
     Active Substance: HALOPERIDOL
  4. CARVEDELOL [Concomitant]
  5. OMEPHROZOLE [Concomitant]
  6. RANITIDINE. [Suspect]
     Active Substance: RANITIDINE
     Indication: BARRETT^S OESOPHAGUS
     Route: 048
     Dates: end: 201911
  7. SPIRONILACTONE [Concomitant]
  8. FUROSIMIDE [Concomitant]
     Active Substance: FUROSEMIDE

REACTIONS (1)
  - Polyp [None]

NARRATIVE: CASE EVENT DATE: 201805
